FAERS Safety Report 7604342-8 (Version None)
Quarter: 2011Q3

REPORT INFORMATION
  Report Type: 
  Country: None (occurrence: None)
  Receive Date: 20110712
  Receipt Date: 20110704
  Transmission Date: 20111222
  Serious: Yes (Other)
  Sender: FDA-Public Use
  Company Number: PHHO2011DE09072

PATIENT
  Sex: Male
  Weight: 59.1 kg

DRUGS (3)
  1. METHYLPREDNISOLONE [Concomitant]
  2. AEB071 [Suspect]
     Indication: RENAL TRANSPLANT
     Dosage: UNKNOWN
     Route: 048
     Dates: start: 20100415, end: 20110524
  3. CERTICAN [Suspect]
     Indication: RENAL TRANSPLANT
     Dosage: UNKNOWN
     Route: 048
     Dates: start: 20100415, end: 20110524

REACTIONS (1)
  - NEPHROTIC SYNDROME [None]
